FAERS Safety Report 19653925 (Version 2)
Quarter: 2021Q3

REPORT INFORMATION
  Report Type: Report from Study
  Country: None (occurrence: US)
  Receive Date: 20210804
  Receipt Date: 20210809
  Transmission Date: 20211014
  Serious: Yes (Other)
  Sender: FDA-Public Use
  Company Number: US-ABBVIE-21K-163-4018855-00

PATIENT
  Age: 41 Year
  Sex: Female
  Weight: 103.06 kg

DRUGS (3)
  1. HUMIRA [Suspect]
     Active Substance: ADALIMUMAB
     Indication: HIDRADENITIS
     Dosage: CF
     Route: 058
     Dates: start: 2020
  2. PFIZER?BIONTECH COVID?19 VACCINE [Concomitant]
     Active Substance: TOZINAMERAN
     Route: 030
     Dates: start: 20210320, end: 20210320
  3. PFIZER?BIONTECH COVID?19 VACCINE [Concomitant]
     Active Substance: TOZINAMERAN
     Indication: COVID-19 IMMUNISATION
     Dosage: MANUFACTURING:PFIZER
     Route: 030
     Dates: start: 20210227, end: 20210227

REACTIONS (2)
  - Ligament rupture [Recovering/Resolving]
  - Hidradenitis [Unknown]

NARRATIVE: CASE EVENT DATE: 202103
